FAERS Safety Report 7852618-1 (Version None)
Quarter: 2011Q4

REPORT INFORMATION
  Report Type: 
  Country: None (occurrence: None)
  Receive Date: 20111026
  Receipt Date: 20111021
  Transmission Date: 20120403
  Serious: Yes (Death, Life-Threatening, Hospitalization)
  Sender: FDA-Public Use
  Company Number: US-GLAXOSMITHKLINE-A0950296A

PATIENT
  Age: 65 Year
  Sex: Male
  Weight: 77.3 kg

DRUGS (15)
  1. OXYCODONE HCL [Concomitant]
  2. BENAZEPRIL HYDROCHLORIDE [Concomitant]
  3. VANCOMYCIN HCL [Concomitant]
  4. VALTREX [Concomitant]
  5. ZOFRAN [Concomitant]
  6. NEUPOGEN [Concomitant]
  7. COMPAZINE [Concomitant]
  8. MELPHALAN HYDROCHLORIDE [Suspect]
     Indication: MULTIPLE MYELOMA
     Dosage: 100MGM2 PER DAY
     Route: 042
     Dates: start: 20110816, end: 20110817
  9. AMLODIPINE [Concomitant]
  10. LEVAQUIN [Concomitant]
  11. LOPERAMIDE HCL [Concomitant]
  12. CEFEPIME [Concomitant]
  13. DIFLUCAN [Concomitant]
  14. FLAGYL [Concomitant]
  15. TRAMADOL HCL [Concomitant]

REACTIONS (7)
  - STAPHYLOCOCCAL SEPSIS [None]
  - DIARRHOEA [None]
  - FEBRILE NEUTROPENIA [None]
  - DEATH [None]
  - DEPRESSED LEVEL OF CONSCIOUSNESS [None]
  - NAUSEA [None]
  - ANTIBIOTIC RESISTANT STAPHYLOCOCCUS TEST POSITIVE [None]
